FAERS Safety Report 7707705-5 (Version None)
Quarter: 2011Q3

REPORT INFORMATION
  Report Type: 
  Country: None (occurrence: None)
  Receive Date: 20110824
  Receipt Date: 20110812
  Transmission Date: 20111222
  Serious: Yes (Death, Hospitalization)
  Sender: FDA-Public Use
  Company Number: KR-CELGENEUS-286-50794-11062268

PATIENT
  Sex: Male
  Weight: 60 kg

DRUGS (7)
  1. PROTEIN COMBINATION [Concomitant]
     Indication: SUPPLEMENTATION THERAPY
     Dosage: 1 LITERS
     Route: 011
     Dates: start: 20110406, end: 20110421
  2. RANITIDINE [Concomitant]
     Indication: ABDOMINAL DISCOMFORT
     Dosage: 100 MILLIGRAM
     Route: 041
     Dates: start: 20110406, end: 20110408
  3. VIDAZA [Suspect]
     Dosage: 120 MILLIGRAM
     Route: 050
     Dates: start: 20110321, end: 20110327
  4. ITRACONAZOLE [Concomitant]
     Indication: FUNGAL INFECTION
     Dosage: 400 MILLIGRAM
     Route: 041
     Dates: start: 20110411, end: 20110412
  5. FILGRASTIM [Concomitant]
     Indication: NEUTROPENIA
     Dosage: 300 MICROGRAM
     Route: 058
     Dates: start: 20110407, end: 20110420
  6. AMPHOTERICIN B [Concomitant]
     Indication: PROPHYLAXIS
     Route: 065
     Dates: start: 20110412, end: 20110418
  7. VIDAZA [Suspect]
     Dosage: 120 MILLIGRAM
     Route: 050
     Dates: start: 20101230

REACTIONS (2)
  - PNEUMONIA [None]
  - NEUTROPENIA [None]
